FAERS Safety Report 6370892-8 (Version None)
Quarter: 2009Q3

REPORT INFORMATION
  Report Type: 
  Country: None (occurrence: None)
  Receive Date: 20090923
  Receipt Date: 20070605
  Transmission Date: 20100115
  Serious: No
  Sender: FDA-Public Use
  Company Number: US-ASTRAZENECA-2006UW22577

PATIENT
  Age: 13826 Day
  Sex: Male
  Weight: 110.8 kg

DRUGS (23)
  1. SEROQUEL [Suspect]
     Indication: SCHIZOPHRENIA
     Route: 048
     Dates: start: 19850826
  2. SEROQUEL [Suspect]
     Indication: BIPOLAR DISORDER
     Route: 048
     Dates: start: 19850826
  3. SEROQUEL [Suspect]
     Dosage: 100 MG - 400 MG
     Route: 048
     Dates: start: 20040920
  4. SEROQUEL [Suspect]
     Dosage: 100 MG - 400 MG
     Route: 048
     Dates: start: 20040920
  5. GEODON [Concomitant]
  6. HALDOL [Concomitant]
  7. ZYPREXA [Concomitant]
  8. EFFEXOR [Concomitant]
  9. KLONOPIN [Concomitant]
  10. COGENTIN [Concomitant]
  11. ROZEREM [Concomitant]
  12. TOPAMAX [Concomitant]
  13. LEXAPRO [Concomitant]
  14. LIPITOR [Concomitant]
  15. TRICOR [Concomitant]
  16. RISPERDAL [Concomitant]
  17. PROVIGIL [Concomitant]
  18. ATIVAN [Concomitant]
  19. DEPAKOTE [Concomitant]
  20. AMBIEN [Concomitant]
  21. BUSPAR [Concomitant]
  22. ABILIFY [Concomitant]
  23. WELLBUTRIN [Concomitant]

REACTIONS (3)
  - DIABETES MELLITUS [None]
  - IMPAIRED FASTING GLUCOSE [None]
  - METABOLIC SYNDROME [None]
